FAERS Safety Report 11183723 (Version 1)
Quarter: 2015Q2

REPORT INFORMATION
  Report Type: Spontaneous
  Country: US (occurrence: US)
  Receive Date: 20150612
  Receipt Date: 20150612
  Transmission Date: 20150821
  Serious: No
  Sender: FDA-Public Use
  Company Number: US-HORIZON-DUE-0035-2015

PATIENT
  Age: 62 Year
  Sex: Female

DRUGS (1)
  1. DUEXIS [Suspect]
     Active Substance: FAMOTIDINE\IBUPROFEN
     Indication: BURSITIS
     Dates: start: 20150602

REACTIONS (2)
  - Off label use [Unknown]
  - Drug dose omission [Unknown]
